FAERS Safety Report 19781212 (Version 1)
Quarter: 2021Q3

REPORT INFORMATION
  Report Type: Spontaneous
  Country: CN (occurrence: CN)
  Receive Date: 20210902
  Receipt Date: 20210902
  Transmission Date: 20211014
  Serious: Yes (Other)
  Sender: FDA-Public Use
  Company Number: CN-GLAXOSMITHKLINE-CN2021APC183521

PATIENT
  Age: 2 Year
  Sex: Female
  Weight: 11.5 kg

DRUGS (3)
  1. VENTOLIN [Suspect]
     Active Substance: ALBUTEROL SULFATE
     Indication: ASTHMA
     Dosage: 0.8 ML, BID
     Route: 048
     Dates: start: 20210103, end: 20210103
  2. ATROVENT [Suspect]
     Active Substance: IPRATROPIUM BROMIDE
     Indication: ASTHMA
     Dosage: 250 UG, BID
     Route: 048
     Dates: start: 20210103, end: 20210103
  3. BUDESONIDE SUSPENSION FOR INHALATION [Suspect]
     Active Substance: BUDESONIDE
     Indication: ASTHMA
     Dosage: 1 MG, BID
     Route: 048
     Dates: start: 20210103, end: 20210103

REACTIONS (5)
  - Rash papular [Recovering/Resolving]
  - Drug hypersensitivity [Recovering/Resolving]
  - Dysphonia [Recovering/Resolving]
  - Papule [Recovering/Resolving]
  - Rash [Recovering/Resolving]

NARRATIVE: CASE EVENT DATE: 20210103
